FAERS Safety Report 16950023 (Version 2)
Quarter: 2020Q1

REPORT INFORMATION
  Report Type: Report from Study
  Country: ES (occurrence: ES)
  Receive Date: 20191023
  Receipt Date: 20200116
  Transmission Date: 20200409
  Serious: Yes (Other)
  Sender: FDA-Public Use
  Company Number: ES-TEVA-2019-ES-1124910

PATIENT
  Age: 75 Year
  Sex: Female

DRUGS (4)
  1. BORTEZOMIB (2928A) [Suspect]
     Active Substance: BORTEZOMIB
     Indication: PLASMA CELL MYELOMA
     Route: 058
     Dates: start: 20181213, end: 20181226
  2. ALOPURINOL (318A) [Suspect]
     Active Substance: ALLOPURINOL
     Indication: HYPERURICAEMIA
     Route: 048
     Dates: start: 20181204, end: 20181214
  3. ACICLOVIR (201A) [Suspect]
     Active Substance: ACYCLOVIR
     Dosage: 800MG A DAY
     Route: 048
     Dates: start: 20181211, end: 20181214
  4. SEPTRIN FORTE 160 MG/800 MG COMPRIMIDOS, 20 COMPRIMIDOS [Suspect]
     Active Substance: SULFAMETHOXAZOLE\TRIMETHOPRIM
     Indication: ANTIBIOTIC PROPHYLAXIS
     Dosage: 2 COMP 3 TIMES PER WEEK (6 DOSAGE FORMS)
     Route: 048
     Dates: start: 20181211, end: 20181214

REACTIONS (1)
  - Acute generalised exanthematous pustulosis [Recovered/Resolved]

NARRATIVE: CASE EVENT DATE: 20181230
